FAERS Safety Report 6261693-X (Version None)
Quarter: 2009Q3

REPORT INFORMATION
  Report Type: 
  Country: None (occurrence: None)
  Receive Date: 20090709
  Receipt Date: 20090629
  Transmission Date: 20100115
  Serious: Yes (Hospitalization, Other)
  Sender: FDA-Public Use
  Company Number: AT-ASTRAZENECA-2009SE03693

PATIENT
  Age: 780 Month
  Sex: Female

DRUGS (6)
  1. ARIMIDEX [Suspect]
     Route: 048
     Dates: start: 20030601, end: 20060308
  2. ARIMIDEX [Suspect]
     Route: 048
     Dates: start: 20060308
  3. EUTHYROX [Concomitant]
     Indication: THYROID HAEMORRHAGE
     Route: 048
  4. ACECOMB [Concomitant]
     Indication: HYPERTENSION
     Route: 048
  5. DAFLON [Concomitant]
     Indication: HAEMORRHOIDS
     Dosage: 1X2
     Route: 048
  6. CAL-D-VITA [Concomitant]
     Indication: OSTEOPOROSIS PROPHYLAXIS
     Dosage: 2X1
     Route: 048

REACTIONS (1)
  - ENDOMETRIAL METAPLASIA [None]
